FAERS Safety Report 6927089-X (Version None)
Quarter: 2010Q3

REPORT INFORMATION
  Report Type: 
  Country: None (occurrence: None)
  Receive Date: 20100816
  Receipt Date: 20100813
  Transmission Date: 20110219
  Serious: No
  Sender: FDA-Public Use
  Company Number: US-ABBOTT-10P-163-0663557-00

PATIENT
  Sex: Male
  Weight: 73.094 kg

DRUGS (8)
  1. SIMCOR [Suspect]
     Indication: DYSLIPIDAEMIA
     Dosage: 500/20 MG AT BEDTIME
     Dates: start: 20100613
  2. NIASPAN [Concomitant]
     Indication: PRODUCT USED FOR UNKNOWN INDICATION
     Route: 048
     Dates: start: 20100812
  3. QUINAPRIL [Concomitant]
     Indication: PRODUCT USED FOR UNKNOWN INDICATION
     Route: 048
  4. ASPIRIN [Concomitant]
     Indication: PRODUCT USED FOR UNKNOWN INDICATION
     Route: 048
  5. COLCHICINE [Concomitant]
     Indication: PRODUCT USED FOR UNKNOWN INDICATION
     Route: 048
  6. ACTOPLUS MET [Concomitant]
     Indication: PRODUCT USED FOR UNKNOWN INDICATION
     Route: 048
  7. NAPROSYN [Concomitant]
     Indication: ARTHRALGIA
     Route: 048
  8. AMITRIPTYLINE HYDROCHLORIDE [Concomitant]
     Indication: RESTLESSNESS
     Route: 048

REACTIONS (2)
  - FEELING HOT [None]
  - FLUSHING [None]
